FAERS Safety Report 15687293 (Version 1)
Quarter: 2018Q4

REPORT INFORMATION
  Report Type: Report from Study
  Country: None (occurrence: US)
  Receive Date: 20181205
  Receipt Date: 20181205
  Transmission Date: 20190205
  Serious: Yes (Other)
  Sender: FDA-Public Use
  Company Number: US-ABBVIE-18K-163-2385693-00

PATIENT
  Age: 59 Year
  Sex: Male

DRUGS (3)
  1. HUMIRA [Suspect]
     Active Substance: ADALIMUMAB
     Route: 058
     Dates: start: 201810
  2. HUMIRA [Suspect]
     Active Substance: ADALIMUMAB
     Route: 058
     Dates: start: 201808, end: 201810
  3. HUMIRA [Suspect]
     Active Substance: ADALIMUMAB
     Indication: RHEUMATOID ARTHRITIS
     Route: 058
     Dates: start: 20180525, end: 201808

REACTIONS (10)
  - Joint stiffness [Recovering/Resolving]
  - Urinary tract infection [Recovered/Resolved]
  - Trigger finger [Recovered/Resolved]
  - Loss of personal independence in daily activities [Unknown]
  - Joint effusion [Unknown]
  - Gait disturbance [Recovering/Resolving]
  - Joint swelling [Unknown]
  - Arthralgia [Recovering/Resolving]
  - Pain [Unknown]
  - Musculoskeletal stiffness [Unknown]

NARRATIVE: CASE EVENT DATE: 2018
